FAERS Safety Report 4775477-2 (Version None)
Quarter: 2005Q3

REPORT INFORMATION
  Report Type: 
  Country: None (occurrence: None)
  Receive Date: 20050921
  Receipt Date: 20050921
  Transmission Date: 20060218
  Serious: Yes (Other)
  Sender: FDA-Public Use
  Company Number: None

PATIENT
  Sex: Female

DRUGS (4)
  1. NEXIUM [Suspect]
     Indication: GASTROOESOPHAGEAL REFLUX DISEASE
     Dosage: 40 MG ONCE DAILY P.O.
     Route: 048
     Dates: start: 20050822, end: 20050826
  2. CEFZIL [Concomitant]
  3. MEDROL DOSPAK [Concomitant]
  4. NASONEX [Concomitant]

REACTIONS (1)
  - CHEST PAIN [None]
